FAERS Safety Report 5275417-6 (Version None)
Quarter: 2007Q1

REPORT INFORMATION
  Report Type: 
  Country: None (occurrence: None)
  Receive Date: 20070322
  Receipt Date: 20070322
  Transmission Date: 20070707
  Serious: Yes (Hospitalization)
  Sender: FDA-Public Use
  Company Number: None

PATIENT
  Age: 64 Year
  Sex: Male
  Weight: 78.7 kg

DRUGS (1)
  1. WARFARIN SODIUM [Suspect]
     Indication: DEEP VEIN THROMBOSIS
     Dosage: DAILY ORAL
     Route: 048

REACTIONS (4)
  - FAECES DISCOLOURED [None]
  - HAEMATURIA [None]
  - HAEMOPTYSIS [None]
  - TREATMENT NONCOMPLIANCE [None]
